FAERS Safety Report 9201097 (Version 1)
Quarter: 2013Q2

REPORT INFORMATION
  Report Type: Spontaneous
  Country: US (occurrence: US)
  Receive Date: 20130401
  Receipt Date: 20130401
  Transmission Date: 20140414
  Serious: No
  Sender: FDA-Public Use
  Company Number: US-PFIZER INC-2013101889

PATIENT
  Sex: Male

DRUGS (1)
  1. FLECTOR [Suspect]
     Indication: SCIATICA
     Dosage: 1 DF, 2X/DAY
     Dates: start: 201303

REACTIONS (1)
  - Rash macular [Not Recovered/Not Resolved]
